FAERS Safety Report 7502227-9 (Version None)
Quarter: 2011Q2

REPORT INFORMATION
  Report Type: 
  Country: None (occurrence: None)
  Receive Date: 20110523
  Receipt Date: 20110523
  Transmission Date: 20111010
  Serious: Yes (Hospitalization)
  Sender: FDA-Public Use
  Company Number: None

PATIENT
  Sex: Female
  Weight: 54.5 kg

DRUGS (3)
  1. TAXOL [Suspect]
     Dosage: 272 MG
     Dates: end: 20110502
  2. METOPROLOL SUCCINATE [Concomitant]
  3. COUMADIN [Concomitant]

REACTIONS (8)
  - ASTHENIA [None]
  - FATIGUE [None]
  - BLOOD PHOSPHORUS DECREASED [None]
  - INTERNATIONAL NORMALISED RATIO DECREASED [None]
  - ACTIVITIES OF DAILY LIVING IMPAIRED [None]
  - GAIT DISTURBANCE [None]
  - BLOOD CALCIUM DECREASED [None]
  - DEHYDRATION [None]
